FAERS Safety Report 18228168 (Version 3)
Quarter: 2020Q3

REPORT INFORMATION
  Report Type: Spontaneous
  Country: US (occurrence: US)
  Receive Date: 20200903
  Receipt Date: 20200918
  Transmission Date: 20201103
  Serious: Yes (Hospitalization)
  Sender: FDA-Public Use
  Company Number: US-HORIZON-TEP-1685-2020

PATIENT
  Age: 76 Year
  Sex: Male

DRUGS (8)
  1. TEPEZZA [Suspect]
     Active Substance: TEPROTUMUMAB-TRBW
     Indication: ENDOCRINE OPHTHALMOPATHY
     Dosage: 20MG/KG IV Q3WEEKS
     Route: 042
     Dates: start: 20200519
  2. VITMAIN B1 [Concomitant]
     Dosage: AS NEEDED
  3. ASPIRIN. [Concomitant]
     Active Substance: ASPIRIN
     Dosage: 81MG/DAILY
  4. TAPAZOLE [Concomitant]
     Active Substance: METHIMAZOLE
  5. MELATONIN [Concomitant]
     Active Substance: MELATONIN
     Dosage: AS NEEDED
  6. HYDROCHLOROTHIAZIDE. [Concomitant]
     Active Substance: HYDROCHLOROTHIAZIDE
     Indication: HYPERTENSION
  7. SIMVASTATIN. [Concomitant]
     Active Substance: SIMVASTATIN
     Dosage: 20MG DAILY
  8. CRESTOR [Concomitant]
     Active Substance: ROSUVASTATIN CALCIUM

REACTIONS (5)
  - Cerebral amyloid angiopathy [Not Recovered/Not Resolved]
  - Cerebral haematoma [Recovering/Resolving]
  - Pulmonary embolism [Recovering/Resolving]
  - Parkinsonism [Unknown]
  - Catatonia [Recovering/Resolving]
